FAERS Safety Report 20817946 (Version 1)
Quarter: 2022Q2

REPORT INFORMATION
  Report Type: Spontaneous
  Country: US (occurrence: None)
  Receive Date: 20220511
  Receipt Date: 20220511
  Transmission Date: 20220721
  Serious: No
  Sender: FDA-Public Use
  Company Number: None

PATIENT
  Sex: Female

DRUGS (5)
  1. RASUVO [Suspect]
     Active Substance: METHOTREXATE SODIUM
     Indication: Dermatomyositis
     Dosage: 20 MG EVERY WEEK SUBCUTANEOUS?
     Route: 058
     Dates: start: 20220412
  2. VITAMIN D [Concomitant]
     Active Substance: VITAMIN D NOS
  3. HYDROXYCHLOROQUINE SULFATE [Concomitant]
     Active Substance: HYDROXYCHLOROQUINE SULFATE
  4. MEDROXYPROGESTERONE ACETA [Concomitant]
  5. ESTRADIOL [Concomitant]

REACTIONS (1)
  - Drug ineffective [None]
